FAERS Safety Report 20810135 (Version 1)
Quarter: 2022Q2

REPORT INFORMATION
  Report Type: Spontaneous
  Country: US (occurrence: US)
  Receive Date: 20220510
  Receipt Date: 20220510
  Transmission Date: 20220721
  Serious: No
  Sender: FDA-Public Use
  Company Number: US-OYSTER POINT PHARMA, INC.-2022OYS00207

PATIENT
  Sex: Female

DRUGS (3)
  1. TYRVAYA [Suspect]
     Active Substance: VARENICLINE TARTRATE
     Indication: Dry eye
     Dosage: 1 SPRAY IN EACH NOSTRIL
     Route: 045
     Dates: start: 20211217, end: 202112
  2. RESTASIS [Suspect]
     Active Substance: CYCLOSPORINE
     Dosage: UNK, 3X/DAY
     Route: 047
     Dates: start: 202111
  3. SYSTANE (HYPROMELLOSE 2910 (4000 MPA.S)) [Suspect]
     Active Substance: HYPROMELLOSE 2910 (4000 MPA.S)
     Dosage: UNK, 12X/DAY (EVERY 2 HOURS)
     Route: 047
     Dates: start: 202111

REACTIONS (10)
  - Foreign body sensation in eyes [Not Recovered/Not Resolved]
  - Choking [Recovered/Resolved]
  - Gastrooesophageal reflux disease [Unknown]
  - Dysphagia [Recovered/Resolved]
  - Eye irritation [Unknown]
  - Throat tightness [Recovered/Resolved]
  - Accidental exposure to product [Recovered/Resolved]
  - Sneezing [Recovered/Resolved]
  - Nasal discomfort [Recovered/Resolved]
  - Throat irritation [Unknown]

NARRATIVE: CASE EVENT DATE: 20211201
